FAERS Safety Report 25953809 (Version 1)
Quarter: 2025Q4

REPORT INFORMATION
  Report Type: Spontaneous
  Country: US (occurrence: None)
  Receive Date: 20251023
  Receipt Date: 20251023
  Transmission Date: 20260117
  Serious: Yes (Hospitalization)
  Sender: FDA-CTU
  Company Number: None

PATIENT
  Age: 64 Year
  Sex: Female

DRUGS (1)
  1. VERZENIO [Suspect]
     Active Substance: ABEMACICLIB
     Indication: Breast cancer
     Dosage: 100 MG TWICE A DAY ORL?
     Route: 048
     Dates: start: 20230622

REACTIONS (3)
  - Urinary tract infection [None]
  - Sepsis [None]
  - Pneumocystis test [None]

NARRATIVE: CASE EVENT DATE: 20250912
